FAERS Safety Report 7688531-2 (Version None)
Quarter: 2011Q3

REPORT INFORMATION
  Report Type: 
  Country: None (occurrence: None)
  Receive Date: 20110817
  Receipt Date: 20110817
  Transmission Date: 20111222
  Serious: Yes (Life-Threatening, Hospitalization, Disabling)
  Sender: FDA-Public Use
  Company Number: None

PATIENT
  Age: 89 Year
  Sex: Female

DRUGS (1)
  1. AVELOX [Suspect]
     Indication: INFECTION
     Dosage: 250ML
     Route: 041
     Dates: start: 20110806, end: 20110811

REACTIONS (6)
  - HEART RATE IRREGULAR [None]
  - HALLUCINATION, VISUAL [None]
  - CATATONIA [None]
  - ASTHENIA [None]
  - AGITATION [None]
  - GENERAL PHYSICAL HEALTH DETERIORATION [None]
